FAERS Safety Report 14935887 (Version 1)
Quarter: 2018Q2

REPORT INFORMATION
  Report Type: Spontaneous
  Country: RO (occurrence: RO)
  Receive Date: 20180524
  Receipt Date: 20180524
  Transmission Date: 20180711
  Serious: Yes (Other)
  Sender: FDA-Public Use
  Company Number: RO-IMPAX LABORATORIES, INC-2018-IPXL-01725

PATIENT
  Age: 48 Year
  Sex: Male

DRUGS (1)
  1. ANAGRELIDE HYDROCHLORIDE. [Suspect]
     Active Substance: ANAGRELIDE HYDROCHLORIDE
     Indication: ESSENTIAL THROMBOCYTHAEMIA
     Dosage: 2 MG, DAILY
     Route: 065

REACTIONS (1)
  - Prinzmetal angina [Recovered/Resolved]
